FAERS Safety Report 12998100 (Version 1)
Quarter: 2016Q4

REPORT INFORMATION
  Report Type: Spontaneous
  Country: US (occurrence: US)
  Receive Date: 20161202
  Receipt Date: 20161202
  Transmission Date: 20170207
  Serious: Yes (Other)
  Sender: FDA-Public Use
  Company Number: None

PATIENT
  Age: 58 Year
  Sex: Male
  Weight: 117 kg

DRUGS (1)
  1. NITRO TABS, BRAND UNKNOWN [Suspect]
     Active Substance: NITROGLYCERIN
     Indication: MYOCARDIAL INFARCTION
     Dosage: ?          QUANTITY:1 TABLET(S);OTHER FREQUENCY:SINGLE TIME;?
     Route: 060

REACTIONS (2)
  - Cardiac disorder [None]
  - Obstructive airways disorder [None]

NARRATIVE: CASE EVENT DATE: 20161129
